FAERS Safety Report 5759957-9 (Version None)
Quarter: 2008Q2

REPORT INFORMATION
  Report Type: 
  Country: None (occurrence: None)
  Receive Date: 20080605
  Receipt Date: 20080526
  Transmission Date: 20081010
  Serious: Yes (Other)
  Sender: FDA-Public Use
  Company Number: FR-ROCHE-566922

PATIENT
  Age: 70 Year
  Sex: Female

DRUGS (1)
  1. ROCEPHIN [Suspect]
     Indication: DRUG USE FOR UNKNOWN INDICATION
     Dosage: FORMULATION REPORTED AS: INJECTABLE AMPULE.
     Route: 058
     Dates: start: 20080417, end: 20080424

REACTIONS (2)
  - INJECTION SITE NECROSIS [None]
  - SKIN INDURATION [None]
